FAERS Safety Report 25264513 (Version 1)
Quarter: 2025Q2

REPORT INFORMATION
  Report Type: Spontaneous
  Country: SE (occurrence: SE)
  Receive Date: 20250502
  Receipt Date: 20250502
  Transmission Date: 20250717
  Serious: Yes (Other)
  Sender: ABBVIE
  Company Number: None

PATIENT
  Age: 34 Year
  Sex: Female
  Weight: 82 kg

DRUGS (1)
  1. RINVOQ [Suspect]
     Active Substance: UPADACITINIB
     Indication: Dermatitis atopic
     Dosage: 15 MG DAILY
     Route: 048
     Dates: start: 20220202, end: 20250318

REACTIONS (1)
  - Thrombocytosis [Recovered/Resolved]

NARRATIVE: CASE EVENT DATE: 20220222
